FAERS Safety Report 9527571 (Version 1)
Quarter: 2013Q1

REPORT INFORMATION
  Report Type: Spontaneous
  Country: US (occurrence: None)
  Receive Date: 20130311
  Receipt Date: 20130311
  Transmission Date: 20140127
  Serious: No
  Sender: FDA-Public Use
  Company Number: 1302USA004188

PATIENT
  Age: 60 Year
  Sex: Male

DRUGS (1)
  1. ZIOPTAN [Suspect]
     Indication: GLAUCOMA
     Dosage: 0.0015%, ONE EYE TOPICAL AS OPTHALMIC, OPTHALMIC
     Dates: start: 20130206, end: 20130207

REACTIONS (1)
  - Eye inflammation [None]
